APPROVED DRUG PRODUCT: PRASUGREL
Active Ingredient: PRASUGREL HYDROCHLORIDE
Strength: EQ 10MG BASE
Dosage Form/Route: TABLET;ORAL
Application: A205913 | Product #002
Applicant: AMNEAL PHARMACEUTICALS OF NEW YORK LLC
Approved: Jun 19, 2018 | RLD: No | RS: No | Type: DISCN